FAERS Safety Report 5841136 (Version 4)
Quarter: 2020Q3

REPORT INFORMATION
  Report Type: Report from Study
  Country: ES (occurrence: ES)
  Receive Date: 20050721
  Receipt Date: 20060403
  Transmission Date: 20201105
  Serious: Yes (Death)
  Sender: FDA-Public Use
  Company Number: ES-JNJFOC-20050702215

PATIENT
  Age: 85 Year
  Sex: Female

DRUGS (2)
  1. REOPRO [Suspect]
     Active Substance: ABCIXIMAB
     Route: 042
  2. REOPRO [Suspect]
     Active Substance: ABCIXIMAB
     Route: 042

REACTIONS (1)
  - Haemorrhagic transformation stroke [Fatal]

NARRATIVE: CASE EVENT DATE: 20050708
